FAERS Safety Report 6947744-5 (Version None)
Quarter: 2010Q3

REPORT INFORMATION
  Report Type: 
  Country: None (occurrence: None)
  Receive Date: 20100828
  Receipt Date: 20090929
  Transmission Date: 20110219
  Serious: No
  Sender: FDA-Public Use
  Company Number: US-ABBOTT-09P-163-0600123-00

PATIENT
  Sex: Female
  Weight: 73.548 kg

DRUGS (1)
  1. NIASPAN [Suspect]
     Indication: PRODUCT USED FOR UNKNOWN INDICATION
     Dates: start: 20090926

REACTIONS (4)
  - INSOMNIA [None]
  - MALAISE [None]
  - SENSORY DISTURBANCE [None]
  - TINNITUS [None]
